FAERS Safety Report 9433234 (Version 2)
Quarter: 2013Q4

REPORT INFORMATION
  Report Type: Spontaneous
  Country: JP (occurrence: JP)
  Receive Date: 20130731
  Receipt Date: 20131011
  Transmission Date: 20140711
  Serious: Yes (Other)
  Sender: FDA-Public Use
  Company Number: JP-GLAXOSMITHKLINE-B0905293A

PATIENT
  Age: 38 Year
  Sex: Female
  Weight: 78 kg

DRUGS (10)
  1. PAXIL [Suspect]
     Indication: OBSESSIVE-COMPULSIVE DISORDER
     Route: 048
     Dates: start: 20080311, end: 20130124
  2. PAXIL [Suspect]
     Indication: OBSESSIVE-COMPULSIVE DISORDER
     Route: 048
     Dates: start: 20130124, end: 20130130
  3. PAXIL [Suspect]
     Indication: OBSESSIVE-COMPULSIVE DISORDER
     Route: 048
     Dates: start: 20130131, end: 20130206
  4. PAXIL [Suspect]
     Indication: OBSESSIVE-COMPULSIVE DISORDER
     Route: 048
     Dates: start: 20130207, end: 20130213
  5. PAXIL [Suspect]
     Indication: OBSESSIVE-COMPULSIVE DISORDER
     Route: 048
     Dates: start: 20130530, end: 20130616
  6. PAXIL [Suspect]
     Indication: OBSESSIVE-COMPULSIVE DISORDER
     Route: 048
     Dates: start: 20130617, end: 20130710
  7. PAXIL [Suspect]
     Indication: OBSESSIVE-COMPULSIVE DISORDER
     Route: 048
     Dates: start: 20130711
  8. SOLANAX [Concomitant]
     Indication: OBSESSIVE-COMPULSIVE DISORDER
     Route: 048
     Dates: start: 20100803, end: 20130124
  9. TALION [Concomitant]
     Indication: URTICARIA
     Route: 048
     Dates: start: 20100316
  10. ZESULAN [Concomitant]
     Indication: URTICARIA
     Route: 048
     Dates: start: 20120927, end: 20130124

REACTIONS (5)
  - Caesarean section [Unknown]
  - Urticaria [Unknown]
  - Exposure during pregnancy [Unknown]
  - Premature labour [Unknown]
  - Live birth [Unknown]
